FAERS Safety Report 6701514-1 (Version None)
Quarter: 2010Q2

REPORT INFORMATION
  Report Type: 
  Country: None (occurrence: None)
  Receive Date: 20100427
  Receipt Date: 20100412
  Transmission Date: 20101027
  Serious: Yes (Hospitalization)
  Sender: FDA-Public Use
  Company Number: 2010001348

PATIENT
  Age: 48 Year
  Sex: Female
  Weight: 69.1 kg

DRUGS (1)
  1. TARCEVA [Suspect]
     Indication: NON-SMALL CELL LUNG CANCER
     Dosage: (150 MG, ONE TIME), ORAL
     Route: 048
     Dates: start: 20100101

REACTIONS (3)
  - ANAPHYLACTIC REACTION [None]
  - FALL [None]
  - HYPOAESTHESIA [None]
